FAERS Safety Report 8922070 (Version 2)
Quarter: 2013Q2

REPORT INFORMATION
  Report Type: Spontaneous
  Country: SE (occurrence: SE)
  Receive Date: 20121123
  Receipt Date: 20130514
  Transmission Date: 20140414
  Serious: Yes (Other)
  Sender: FDA-Public Use
  Company Number: SE-JNJFOC-20121110045

PATIENT
  Age: 40 Year
  Sex: Male

DRUGS (2)
  1. REMICADE [Suspect]
     Indication: COLITIS
     Dosage: POWDER FOR CONCENTRATE SOLUTION FOR INFUSION 100 MG
     Route: 042
     Dates: end: 201211
  2. REMICADE [Suspect]
     Indication: CROHN^S DISEASE
     Dosage: POWDER FOR CONCENTRATE SOLUTION FOR INFUSION 100 MG
     Route: 042
     Dates: end: 201211

REACTIONS (3)
  - Trigeminal nerve disorder [Unknown]
  - Cognitive disorder [Unknown]
  - Depression [Unknown]
